FAERS Safety Report 9282906 (Version 9)
Quarter: 2014Q1

REPORT INFORMATION
  Report Type: Spontaneous
  Country: US (occurrence: US)
  Receive Date: 20130510
  Receipt Date: 20140310
  Transmission Date: 20141002
  Serious: Yes (Hospitalization, Other)
  Sender: FDA-Public Use
  Company Number: US-009507513-1305USA003505

PATIENT
  Sex: Female
  Weight: 63.39 kg

DRUGS (8)
  1. FOSAMAX [Suspect]
     Indication: OSTEOPOROSIS
     Dosage: 10 MG, UNK
     Route: 048
     Dates: start: 20000907, end: 20010519
  2. FOSAMAX [Suspect]
     Dosage: 70 MG, QW
     Route: 048
     Dates: start: 20010622, end: 20040228
  3. FOSAMAX [Suspect]
     Dosage: 70 MG, QW
     Route: 048
     Dates: start: 20051115
  4. FOSAMAX [Suspect]
     Dosage: 70 MG, UNK
     Route: 048
     Dates: start: 20051226, end: 20071008
  5. BONIVA [Suspect]
     Indication: BONE DENSITY DECREASED
     Dosage: 150 MG, UNK
     Route: 048
     Dates: start: 20080128, end: 20120125
  6. BONIVA [Suspect]
     Indication: OSTEOPOROSIS
  7. HORMONES (UNSPECIFIED) [Concomitant]
     Dosage: UNK
     Dates: start: 1979, end: 2002
  8. ACIPHEX [Concomitant]
     Dosage: UNK
     Dates: start: 20001205

REACTIONS (41)
  - Pain in extremity [Unknown]
  - Constipation [Unknown]
  - Nausea [Unknown]
  - Arthralgia [Unknown]
  - Gastrooesophageal reflux disease [Unknown]
  - Femur fracture [Recovering/Resolving]
  - Femur fracture [Recovering/Resolving]
  - Intramedullary rod insertion [Unknown]
  - Meniscus injury [Unknown]
  - Deafness [Unknown]
  - Skin cancer [Unknown]
  - Surgery [Unknown]
  - Stress urinary incontinence [Unknown]
  - Cystocele [Unknown]
  - Rectocele [Unknown]
  - Enterocele [Unknown]
  - Low turnover osteopathy [Unknown]
  - Vitamin D deficiency [Unknown]
  - Hypercholesterolaemia [Unknown]
  - Mood altered [Unknown]
  - Fibromyalgia [Unknown]
  - Cystitis interstitial [Unknown]
  - Arthroscopy [Unknown]
  - Impaired healing [Unknown]
  - Arthritis [Unknown]
  - Osteoarthritis [Unknown]
  - Osteoarthritis [Unknown]
  - Diverticulum [Unknown]
  - Depression [Unknown]
  - Vaginal prolapse [Unknown]
  - Infection [Unknown]
  - Vaginal haemorrhage [Unknown]
  - Dysphoria [Unknown]
  - Anxiety [Unknown]
  - Cognitive disorder [Unknown]
  - Adjustment disorder with anxiety [Unknown]
  - Tonsillectomy [Unknown]
  - Tinnitus [Unknown]
  - Exostosis [Unknown]
  - Blood albumin decreased [Unknown]
  - Asthenia [Unknown]
